FAERS Safety Report 5892415-X (Version None)
Quarter: 2008Q3

REPORT INFORMATION
  Report Type: 
  Country: None (occurrence: None)
  Receive Date: 20080923
  Receipt Date: 20080916
  Transmission Date: 20090109
  Serious: Yes (Other)
  Sender: FDA-Public Use
  Company Number: GB-BRISTOL-MYERS SQUIBB COMPANY-14341671

PATIENT
  Age: 68 Year
  Sex: Female

DRUGS (7)
  1. GLUCOPHAGE [Suspect]
     Indication: DIABETES MELLITUS
     Route: 048
     Dates: start: 20080131
  2. INSULIN [Concomitant]
     Indication: INSULIN RESISTANT DIABETES
  3. LANTUS [Concomitant]
     Dosage: 1 DF=14 NO UNITS SPECIFIED
     Route: 058
  4. INSULIN LISPRO [Concomitant]
     Route: 058
     Dates: start: 20080804
  5. LEVOTHYROXINE SODIUM [Concomitant]
     Dosage: 1 DF= 50 (NO UNITS SPECIFIED)
     Route: 048
  6. VALSARTAN [Concomitant]
     Dosage: 1 DF= 80(NO UNITS SPECIFIED)
     Route: 048
  7. FUROSEMIDE [Concomitant]
     Dosage: 1 DF= 40(NO UNITS SPECIFIED)
     Route: 048

REACTIONS (6)
  - BRADYPHRENIA [None]
  - CHEST PAIN [None]
  - CONTUSION [None]
  - FALL [None]
  - HEADACHE [None]
  - HYPOGLYCAEMIA [None]
